FAERS Safety Report 5126720-1 (Version None)
Quarter: 2006Q4

REPORT INFORMATION
  Report Type: 
  Country: None (occurrence: None)
  Receive Date: 20061013
  Receipt Date: 20060930
  Transmission Date: 20070319
  Serious: Yes (Other)
  Sender: FDA-Public Use
  Company Number: PHRM2006FR02755

PATIENT
  Age: 51 Year
  Sex: Male

DRUGS (2)
  1. TEGRETOL [Suspect]
     Indication: EPILEPSY
     Dosage: 400 MG, BID
     Route: 048
     Dates: start: 19970101
  2. ALEPSAL [Concomitant]
     Dosage: 50 MG/DAY
     Route: 048

REACTIONS (4)
  - HYPOPARATHYROIDISM [None]
  - OSTEOMALACIA [None]
  - OSTEOPOROSIS [None]
  - PATHOLOGICAL FRACTURE [None]
